FAERS Safety Report 8829262 (Version 3)
Quarter: 2012Q4

REPORT INFORMATION
  Report Type: 
  Country: IT (occurrence: IT)
  Receive Date: 20121008
  Receipt Date: 20121128
  Transmission Date: 20130627
  Serious: Yes (Hospitalization)
  Sender: FDA-Public Use
  Company Number: PHHY2012IT085263

PATIENT
  Sex: Female

DRUGS (2)
  1. OXALIPLATIN SANDOZ [Suspect]
     Indication: BILIARY CANCER METASTATIC
     Dosage: 133 mg, total dose
     Route: 042
     Dates: start: 20120924, end: 20120924
  2. ESCOZUL [Concomitant]

REACTIONS (4)
  - Cardiac arrest [Unknown]
  - Shock [Unknown]
  - Hypotension [Unknown]
  - Dyspnoea [Unknown]
